FAERS Safety Report 23132429 (Version 1)
Quarter: 2023Q4

REPORT INFORMATION
  Report Type: Report from Study
  Country: US (occurrence: US)
  Receive Date: 20231101
  Receipt Date: 20231101
  Transmission Date: 20240110
  Serious: No
  Sender: FDA-Public Use
  Company Number: US-002147023-NVSC2023US230804

PATIENT
  Sex: Female

DRUGS (1)
  1. TRIAMCINOLONE [Suspect]
     Active Substance: TRIAMCINOLONE
     Indication: Psoriasis
     Dosage: UNK (TABLET)
     Route: 065

REACTIONS (7)
  - Seborrhoeic keratosis [Unknown]
  - Illness [Unknown]
  - Hypoaesthesia oral [Unknown]
  - Psoriasis [Unknown]
  - Disease progression [Unknown]
  - Wrong technique in product usage process [Unknown]
  - Drug ineffective [Unknown]
